FAERS Safety Report 21200227 (Version 3)
Quarter: 2022Q3

REPORT INFORMATION
  Report Type: Spontaneous
  Country: US (occurrence: US)
  Receive Date: 20220811
  Receipt Date: 20220923
  Transmission Date: 20221027
  Serious: Yes (Other)
  Sender: FDA-Public Use
  Company Number: US-AIMMUNE THERAPEUTICS, INC.-2022AIMT00601

PATIENT

DRUGS (6)
  1. PALFORZIA [Suspect]
     Active Substance: PEANUT
     Indication: Food allergy
     Dosage: IDE (0.5 - 6MG), ONCE
     Route: 048
     Dates: start: 202206, end: 202206
  2. PALFORZIA [Suspect]
     Active Substance: PEANUT
     Dosage: 6MG, 1XDAY
     Route: 048
     Dates: start: 20220713, end: 20220714
  3. PALFORZIA [Suspect]
     Active Substance: PEANUT
     Dosage: 6MG, 1XDAY, LAST DOSE PRIOR TO EVENTS OF ABDOMINAL CRAMPING AND HIVES
     Route: 048
     Dates: start: 20220714, end: 20220714
  4. PALFORZIA [Suspect]
     Active Substance: PEANUT
     Dosage: 3MG, 1XDAY, DOSE DECREASED
     Route: 048
     Dates: start: 20220715, end: 20220804
  5. PALFORZIA [Suspect]
     Active Substance: PEANUT
     Dosage: 6MG, 1XDAY, RE-UPDOSED
     Route: 048
     Dates: start: 20220804, end: 20220805
  6. PALFORZIA [Suspect]
     Active Substance: PEANUT
     Dosage: 6MG, ONCE, LAST DOSE PRIOR TO EVENT
     Route: 048
     Dates: start: 20220805, end: 20220805

REACTIONS (8)
  - Anaphylactic reaction [Recovered/Resolved]
  - Rash [Recovered/Resolved]
  - Ear pruritus [Recovered/Resolved]
  - Abdominal pain upper [Recovered/Resolved]
  - Oral pruritus [Recovered/Resolved]
  - Throat irritation [Recovered/Resolved]
  - Abdominal pain [Unknown]
  - Urticaria [Unknown]

NARRATIVE: CASE EVENT DATE: 20220714
